FAERS Safety Report 5542552-4 (Version None)
Quarter: 2007Q4

REPORT INFORMATION
  Report Type: 
  Country: None (occurrence: None)
  Receive Date: 20071123
  Receipt Date: 20070830
  Transmission Date: 20080405
  Serious: Yes (Other)
  Sender: FDA-Public Use
  Company Number: US-JNJFOC-20070702657

PATIENT
  Age: 47 Year
  Sex: Male
  Weight: 82.1011 kg

DRUGS (2)
  1. LEVAQUIN [Suspect]
     Indication: SINUSITIS
     Dosage: IN 1 DAY, ORAL
     Route: 048
     Dates: start: 20070709, end: 20070710
  2. LOPID (GEMFIBROZIL) UNSPECIFIED [Concomitant]

REACTIONS (3)
  - HEADACHE [None]
  - INSOMNIA [None]
  - PARAESTHESIA [None]
